FAERS Safety Report 17205796 (Version 1)
Quarter: 2020Q1

REPORT INFORMATION
  Report Type: Spontaneous
  Country: US (occurrence: US)
  Receive Date: 20191226
  Receipt Date: 20191226
  Transmission Date: 20200409
  Serious: Yes (Hospitalization)
  Sender: FDA-Public Use
  Company Number: None

PATIENT
  Age: 40 Year
  Sex: Female
  Weight: 98.9 kg

DRUGS (3)
  1. IBUPROFEN 800MG TABLETS EVERY 8 HOURS PRN [Concomitant]
     Dates: start: 20191218, end: 20191221
  2. LAMOTRIGINE 100MG TABLET DAILY [Concomitant]
     Dates: start: 20191218
  3. BREXANOLONE [Suspect]
     Active Substance: BREXANOLONE
     Dosage: ?          OTHER FREQUENCY:PER PI TITRATION;?
     Route: 041
     Dates: start: 20191218, end: 20191221

REACTIONS (1)
  - Pre-eclampsia [None]

NARRATIVE: CASE EVENT DATE: 20191224
